FAERS Safety Report 9189901 (Version 2)
Quarter: 2014Q2

REPORT INFORMATION
  Report Type: Report from Study
  Country: FR (occurrence: FR)
  Receive Date: 20130326
  Receipt Date: 20140417
  Transmission Date: 20141212
  Serious: Yes (Death)
  Sender: FDA-Public Use
  Company Number: FR-SANOFI-AVENTIS-2013SA030964

PATIENT
  Sex: 0

DRUGS (5)
  1. OXALIPLATIN [Suspect]
     Indication: OESOPHAGEAL CARCINOMA
     Dosage: INFUSION ADMINISTERED AS 2HOUR IN 250-500 ML OF 5% GLUCOSE ON DAY 1
     Route: 042
  2. FLUOROURACIL [Suspect]
     Indication: OESOPHAGEAL CARCINOMA
     Dosage: ON DAYS 1, 10 MIN INTRAVENOUS BOLUS
     Route: 040
  3. FLUOROURACIL [Suspect]
     Indication: OESOPHAGEAL CARCINOMA
     Route: 042
  4. LEUCOVORIN [Suspect]
     Indication: OESOPHAGEAL CARCINOMA
     Dosage: 2H INTRAVENOUS INFUSION
     Route: 042
  5. THERAPEUTIC RADIOPHARMACEUTICALS [Suspect]
     Indication: OESOPHAGEAL CARCINOMA
     Route: 065

REACTIONS (1)
  - Lung disorder [Fatal]
